FAERS Safety Report 19128524 (Version 1)
Quarter: 2021Q2

REPORT INFORMATION
  Report Type: Spontaneous
  Country: US (occurrence: US)
  Receive Date: 20210413
  Receipt Date: 20210413
  Transmission Date: 20210717
  Serious: No
  Sender: FDA-Public Use
  Company Number: US-ALLERGAN-2024169US

PATIENT
  Age: 40 Year
  Sex: Female

DRUGS (2)
  1. LATISSE APPLICATOR [DEVICE] [Suspect]
     Active Substance: DEVICE
  2. LATISSE [Suspect]
     Active Substance: BIMATOPROST
     Indication: GROWTH OF EYELASHES
     Dosage: UNK
     Route: 003
     Dates: start: 20200611

REACTIONS (4)
  - Swelling of eyelid [Unknown]
  - Eye irritation [Unknown]
  - Ocular hyperaemia [Unknown]
  - Wrong technique in product usage process [Unknown]

NARRATIVE: CASE EVENT DATE: 202006
